FAERS Safety Report 10018570 (Version 1)
Quarter: 2014Q1

REPORT INFORMATION
  Report Type: Spontaneous
  Country: US (occurrence: US)
  Receive Date: 20140318
  Receipt Date: 20140318
  Transmission Date: 20141002
  Serious: No
  Sender: FDA-Public Use
  Company Number: US-BAYER-2014-035999

PATIENT
  Age: 73 Year
  Sex: Male

DRUGS (3)
  1. GADAVIST [Suspect]
     Indication: NUCLEAR MAGNETIC RESONANCE IMAGING BRAIN
     Dosage: 10 ML, ONCE
     Route: 042
  2. GADAVIST [Suspect]
     Indication: BLINDNESS
  3. GADAVIST [Suspect]
     Indication: DIPLOPIA

REACTIONS (2)
  - Urticaria [Recovered/Resolved]
  - Nasal congestion [Recovered/Resolved]
